FAERS Safety Report 5232068-7 (Version None)
Quarter: 2007Q1

REPORT INFORMATION
  Report Type: 
  Country: None (occurrence: None)
  Receive Date: 20061201
  Receipt Date: 20060828
  Transmission Date: 20070707
  Serious: No
  Sender: FDA-Public Use
  Company Number: US200608006388

PATIENT
  Age: 57 Year
  Sex: Female
  Weight: 99.8 kg

DRUGS (5)
  1. CYMBALTA [Suspect]
     Indication: FIBROMYALGIA
     Dosage: SEE IMAGE
     Route: 048
     Dates: start: 20050701, end: 20060808
  2. CYMBALTA [Suspect]
     Indication: FIBROMYALGIA
     Dosage: SEE IMAGE
     Route: 048
     Dates: start: 20060809, end: 20060821
  3. GABAPENTIN [Concomitant]
  4. AMITRIPTYLINE HCL [Concomitant]
  5. VITAMINS [Concomitant]

REACTIONS (3)
  - DIZZINESS [None]
  - LETHARGY [None]
  - PARAESTHESIA [None]
